FAERS Safety Report 21832250 (Version 2)
Quarter: 2023Q1

REPORT INFORMATION
  Report Type: Report from Study
  Country: ES (occurrence: ES)
  Receive Date: 20230106
  Receipt Date: 20230222
  Transmission Date: 20230418
  Serious: Yes (Hospitalization, Other)
  Sender: FDA-Public Use
  Company Number: ES-SA-SAC20221004001093

PATIENT
  Age: 62 Year
  Weight: 107.3 kg

DRUGS (1)
  1. INSULIN GLARGINE [Suspect]
     Active Substance: INSULIN GLARGINE
     Indication: Type 2 diabetes mellitus
     Dosage: UNK
     Route: 058

REACTIONS (5)
  - Blood glucose increased [Recovering/Resolving]
  - Drug abuse [Unknown]
  - Hypoglycaemia [Recovered/Resolved]
  - Intentional product use issue [Unknown]
  - Tremor [Unknown]
